FAERS Safety Report 16756738 (Version 3)
Quarter: 2020Q3

REPORT INFORMATION
  Report Type: Report from Study
  Country: US (occurrence: US)
  Receive Date: 20190829
  Receipt Date: 20200706
  Transmission Date: 20201102
  Serious: Yes (Death, Other)
  Sender: FDA-Public Use
  Company Number: US-SHIRE-US201927985

PATIENT
  Sex: Female
  Weight: 46.72 kg

DRUGS (1)
  1. TEDUGLUTIDE [Suspect]
     Active Substance: TEDUGLUTIDE
     Indication: SHORT-BOWEL SYNDROME
     Dosage: 0.10 MILLILITER, 1X/DAY:QD
     Route: 065

REACTIONS (2)
  - Myocardial infarction [Fatal]
  - Acute kidney injury [Fatal]
